FAERS Safety Report 18578440 (Version 1)
Quarter: 2020Q4

REPORT INFORMATION
  Report Type: Spontaneous
  Country: US (occurrence: US)
  Receive Date: 20201202
  Receipt Date: 20201202
  Transmission Date: 20210114
  Serious: No
  Sender: FDA-Public Use
  Company Number: None

PATIENT
  Age: 63 Year
  Sex: Male
  Weight: 85.7 kg

DRUGS (7)
  1. IISINOPRIL 2.5 MG BY MOUTH DAILY [Concomitant]
  2. CARVEDILOL. [Suspect]
     Active Substance: CARVEDILOL
     Indication: CARDIAC FAILURE
     Route: 048
     Dates: start: 20200512, end: 20200609
  3. ASPIRIN 325 MG BY MOUTH DAILY [Concomitant]
  4. ATORVASTATIN [Concomitant]
     Active Substance: ATORVASTATIN
  5. FUROSEMIDE 20 MG BY MOUTH DAILY [Concomitant]
  6. APIXABAN 5 MG BY MOUTH TWICE A DAY [Concomitant]
  7. DILTIAZEM ER 240 MG BY MOUTH DAILY [Concomitant]

REACTIONS (2)
  - Paraesthesia [None]
  - Hypoaesthesia [None]

NARRATIVE: CASE EVENT DATE: 20200512
